FAERS Safety Report 8424418-5 (Version None)
Quarter: 2012Q2

REPORT INFORMATION
  Report Type: 
  Country: None (occurrence: None)
  Receive Date: 20120608
  Receipt Date: 20110722
  Transmission Date: 20120825
  Serious: No
  Sender: FDA-Public Use
  Company Number: US-ASTRAZENECA-2011SE44459

PATIENT
  Age: 67 Year
  Sex: Female

DRUGS (1)
  1. PULMICORT FLEXHALER [Suspect]
     Route: 055

REACTIONS (4)
  - ARACHNOIDITIS [None]
  - VISION BLURRED [None]
  - CHRONIC OBSTRUCTIVE PULMONARY DISEASE [None]
  - SLEEP APNOEA SYNDROME [None]
